FAERS Safety Report 8428795-0 (Version None)
Quarter: 2012Q2

REPORT INFORMATION
  Report Type: 
  Country: None (occurrence: None)
  Receive Date: 20120612
  Receipt Date: 20120605
  Transmission Date: 20120825
  Serious: Yes (Hospitalization)
  Sender: FDA-Public Use
  Company Number: FR-US-EMD SERONO, INC.-7137561

PATIENT
  Sex: Female

DRUGS (4)
  1. INTRAUTERINE DEVICE [Concomitant]
     Indication: CONTRACEPTION
  2. PRAZEPAM [Concomitant]
     Indication: SLEEP DISORDER
     Dates: start: 20120101
  3. REBIF [Suspect]
     Indication: PRODUCT USED FOR UNKNOWN INDICATION
     Route: 058
     Dates: start: 20120401, end: 20120510
  4. ZOLPIDEM [Concomitant]
     Indication: SLEEP DISORDER
     Dates: start: 20120101

REACTIONS (1)
  - PHARYNGEAL OEDEMA [None]
